FAERS Safety Report 4838615-9 (Version None)
Quarter: 2005Q4

REPORT INFORMATION
  Report Type: 
  Country: None (occurrence: None)
  Receive Date: 20051129
  Receipt Date: 20050630
  Transmission Date: 20060501
  Serious: No
  Sender: FDA-Public Use
  Company Number: US-GLAXOSMITHKLINE-A0564689A

PATIENT
  Age: 41 Year
  Sex: Male

DRUGS (2)
  1. COMMIT [Suspect]
  2. COMMIT [Suspect]
     Route: 048

REACTIONS (4)
  - DRUG ABUSER [None]
  - DRUG WITHDRAWAL SYNDROME [None]
  - MICTURITION URGENCY [None]
  - NICOTINE DEPENDENCE [None]
